FAERS Safety Report 18612165 (Version 1)
Quarter: 2020Q4

REPORT INFORMATION
  Report Type: Spontaneous
  Country: US (occurrence: US)
  Receive Date: 20201214
  Receipt Date: 20201214
  Transmission Date: 20210114
  Serious: Yes (Other)
  Sender: FDA-Public Use
  Company Number: US-BRISTOL-MYERS SQUIBB COMPANY-BMS-2020-103066

PATIENT
  Sex: Female
  Weight: 112.47 kg

DRUGS (2)
  1. COUMADIN [Suspect]
     Active Substance: WARFARIN SODIUM
     Indication: THROMBOSIS
     Dosage: 4MG DAILY 6 TIMES A WEEK, 2MG DAILY ONCE A WEEK
     Route: 048
     Dates: start: 2006
  2. COUMADIN [Suspect]
     Active Substance: WARFARIN SODIUM
     Dosage: 4MG DAILY 6 TIMES A WEEK, 2MG DAILY ONCE A WEEK
     Route: 048
     Dates: end: 20201113

REACTIONS (8)
  - Breast disorder [Unknown]
  - Arthralgia [Unknown]
  - Thrombosis [Unknown]
  - Gait disturbance [Unknown]
  - International normalised ratio fluctuation [Recovered/Resolved]
  - Nausea [Recovered/Resolved]
  - Wound haemorrhage [Unknown]
  - Back pain [Unknown]

NARRATIVE: CASE EVENT DATE: 2019
